FAERS Safety Report 8015963-5 (Version None)
Quarter: 2011Q4

REPORT INFORMATION
  Report Type: 
  Country: None (occurrence: None)
  Receive Date: 20111230
  Receipt Date: 20111219
  Transmission Date: 20120403
  Serious: Yes (Other)
  Sender: FDA-Public Use
  Company Number: CA-JNJFOC-20111210482

PATIENT
  Sex: Female
  Weight: 90 kg

DRUGS (5)
  1. ATIVAN [Concomitant]
  2. REMICADE [Suspect]
     Indication: CROHN'S DISEASE
     Route: 042
     Dates: start: 20100831
  3. VITAMIN D [Concomitant]
  4. CALCIUM ACETATE [Concomitant]
  5. PATANOL [Concomitant]

REACTIONS (2)
  - RASH [None]
  - SKIN ULCER [None]
